FAERS Safety Report 22823581 (Version 7)
Quarter: 2024Q1

REPORT INFORMATION
  Report Type: Spontaneous
  Country: IN (occurrence: IN)
  Receive Date: 20230815
  Receipt Date: 20240315
  Transmission Date: 20240409
  Serious: Yes (Other)
  Sender: FDA-Public Use
  Company Number: IN-PFIZER INC-PV202300139423

PATIENT
  Age: 27 Year
  Sex: Male

DRUGS (12)
  1. LORLATINIB [Suspect]
     Active Substance: LORLATINIB
     Indication: Non-small cell lung cancer
     Dosage: 100 MG, 1X/DAY
     Route: 048
     Dates: start: 202306
  2. LORLATINIB [Suspect]
     Active Substance: LORLATINIB
     Dosage: 100 MG, 1X/DAY
     Route: 048
     Dates: end: 202401
  3. LORLATINIB [Suspect]
     Active Substance: LORLATINIB
     Dosage: 100 MG, 1X/DAY
     Route: 048
     Dates: start: 20240108
  4. ROSUVASTATIN CALCIUM [Concomitant]
     Active Substance: ROSUVASTATIN CALCIUM
     Dosage: 15 MG, 1X/DAY (HS)
  5. GELUCIL ANTACID [Concomitant]
     Indication: Dyspepsia
     Dosage: 15 ML, AS NEEDED
  6. CALPOL [Concomitant]
     Active Substance: ACETAMINOPHEN
     Indication: Pain
     Dosage: UNK, AS NEEDED - TWICE SOS
  7. TRANEXAMIC ACID [Concomitant]
     Active Substance: TRANEXAMIC ACID
     Indication: Haemoptysis
     Dosage: 500 MG, AS NEEDED
  8. DOMSTAL [Concomitant]
     Indication: Nausea
     Dosage: 10 MG, AS NEEDED - TDS BEFORE MEAL
  9. DOMSTAL [Concomitant]
     Indication: Vomiting
  10. ONDANSETRON HYDROCHLORIDE [Concomitant]
     Active Substance: ONDANSETRON HYDROCHLORIDE
     Indication: Nausea
     Dosage: 4 MG, AS NEEDED
  11. ONDANSETRON HYDROCHLORIDE [Concomitant]
     Active Substance: ONDANSETRON HYDROCHLORIDE
     Indication: Vomiting
  12. IMODIUM [Concomitant]
     Active Substance: LOPERAMIDE HYDROCHLORIDE
     Indication: Diarrhoea
     Dosage: 2 MG, AS NEEDED

REACTIONS (17)
  - Platelet count decreased [Unknown]
  - Hyperglycaemia [Unknown]
  - Viral infection [Recovered/Resolved]
  - Blood creatinine increased [Recovering/Resolving]
  - Dyslipidaemia [Unknown]
  - Dizziness [Unknown]
  - Chest pain [Recovering/Resolving]
  - Lymphadenopathy [Unknown]
  - Haemoglobin decreased [Recovering/Resolving]
  - Amylase increased [Recovered/Resolved]
  - Hyperchlorhydria [Unknown]
  - Blood pressure increased [Unknown]
  - Heart rate increased [Not Recovered/Not Resolved]
  - Body mass index increased [Not Recovered/Not Resolved]
  - Dyspnoea [Recovered/Resolved]
  - Haemoptysis [Recovering/Resolving]
  - Body surface area increased [Unknown]
